FAERS Safety Report 13469972 (Version 1)
Quarter: 2017Q2

REPORT INFORMATION
  Report Type: Spontaneous
  Country: FR (occurrence: FR)
  Receive Date: 20170423
  Receipt Date: 20170423
  Transmission Date: 20170830
  Serious: Yes (Disabling)
  Sender: FDA-Public Use
  Company Number: FR-BAXTER-2017BAX016899

PATIENT
  Age: 37 Year
  Sex: Female

DRUGS (10)
  1. VEPESIDE [Suspect]
     Active Substance: ETOPOSIDE
     Indication: SMALL CELL CARCINOMA
     Dosage: EQUIVALENT TO 230MG OVER 12 HOURS, SLOW IV INJECTION, ICE CHEMOTHERAPY REGIMEN
     Route: 042
     Dates: start: 20160614, end: 20160618
  2. LOXEN LP [Suspect]
     Active Substance: NICARDIPINE
     Indication: HYPERTENSION
     Route: 065
     Dates: start: 201606
  3. HOLOXAN 2000 MG, POUDRE POUR USAGE PARENT?RAL [Suspect]
     Active Substance: IFOSFAMIDE
     Indication: SMALL CELL CARCINOMA
     Dosage: DAILY OVER 4 HOURS (EQUIVALENT TO 3600MG DAILY), ICE CHEMOTHERAPY REGIMEN
     Route: 042
     Dates: start: 20160614, end: 20160618
  4. CARBOPLATINE KABI [Suspect]
     Active Substance: CARBOPLATIN
     Indication: SMALL CELL CARCINOMA
     Dosage: 4 AUC/DAY OVER 6 HOURS, ON 14,15,16 JUN2016, ICE CHEMOTHERAPY REGIMEN
     Route: 042
     Dates: start: 20160614, end: 20160616
  5. CARBOPLATINE KABI [Suspect]
     Active Substance: CARBOPLATIN
     Indication: OVARIAN CANCER STAGE III
     Dosage: ICE CHEMOTHERAPY REGIMEN
     Route: 042
     Dates: start: 20160617, end: 20160617
  6. METHYLENE BLUE. [Suspect]
     Active Substance: METHYLENE BLUE
     Indication: ADVERSE EVENT
     Route: 065
     Dates: start: 201606
  7. UROMITEXAN 5 G/50 ML, SOLUTION INJECTABLE POUR PERFUSION EN FLACON [Suspect]
     Active Substance: MESNA
     Indication: PRODUCT USED FOR UNKNOWN INDICATION
     Route: 042
     Dates: start: 20160614
  8. HOLOXAN 2000 MG, POUDRE POUR USAGE PARENT?RAL [Suspect]
     Active Substance: IFOSFAMIDE
     Indication: OVARIAN CANCER STAGE III
  9. VEPESIDE [Suspect]
     Active Substance: ETOPOSIDE
     Indication: OVARIAN CANCER STAGE III
  10. LASILIX [Suspect]
     Active Substance: FUROSEMIDE
     Indication: HYPERTENSION
     Route: 042
     Dates: start: 201606

REACTIONS (8)
  - Acute kidney injury [Unknown]
  - Hypertension [Recovered/Resolved with Sequelae]
  - Fanconi syndrome [Unknown]
  - Bone marrow failure [Unknown]
  - Hallucination [Unknown]
  - Psychomotor retardation [Unknown]
  - Renal tubular necrosis [Unknown]
  - Encephalopathy [Unknown]

NARRATIVE: CASE EVENT DATE: 201606
